FAERS Safety Report 7251227-5 (Version None)
Quarter: 2011Q1

REPORT INFORMATION
  Report Type: 
  Country: None (occurrence: None)
  Receive Date: 20110128
  Receipt Date: 20110124
  Transmission Date: 20110831
  Serious: Yes (Other)
  Sender: FDA-Public Use
  Company Number: DE-SHIRE-SPV1-2010-01641

PATIENT
  Sex: Male
  Weight: 19 kg

DRUGS (1)
  1. ELAPRASE [Suspect]
     Indication: MUCOPOLYSACCHARIDOSIS II
     Dosage: .5 MG/KG, 1X/WEEK
     Route: 041
     Dates: start: 20100817

REACTIONS (10)
  - HYPERTHERMIA [None]
  - STRESS [None]
  - TACHYCARDIA [None]
  - ANXIETY [None]
  - NAUSEA [None]
  - HYPERTENSION [None]
  - INFUSION RELATED REACTION [None]
  - RASH [None]
  - TACHYPNOEA [None]
  - FLUSHING [None]
